FAERS Safety Report 9122824 (Version 1)
Quarter: 2013Q1

REPORT INFORMATION
  Report Type: Spontaneous
  Country: US (occurrence: US)
  Receive Date: 20130115
  Receipt Date: 20130115
  Transmission Date: 20140127
  Serious: Yes (Other)
  Sender: FDA-Public Use
  Company Number: US-009507513-1301USA003402

PATIENT
  Sex: Female

DRUGS (3)
  1. MONTELUKAST SODIUM [Suspect]
     Indication: URTICARIA
     Route: 050
  2. RANITIDINE [Suspect]
  3. EBASTINE [Suspect]
     Dosage: 4X THE STANDARD DOSE

REACTIONS (2)
  - Blood immunoglobulin E increased [Unknown]
  - Drug ineffective [Unknown]
